FAERS Safety Report 19367776 (Version 4)
Quarter: 2021Q3

REPORT INFORMATION
  Report Type: Spontaneous
  Country: DE (occurrence: DE)
  Receive Date: 20210603
  Receipt Date: 20210720
  Transmission Date: 20211014
  Serious: No
  Sender: FDA-Public Use
  Company Number: DE-GW PHARMA-202105DEGW02688

PATIENT

DRUGS (11)
  1. EPIDYOLEX [Interacting]
     Active Substance: CANNABIDIOL
     Dosage: 150 MILLIGRAM, BID
     Route: 048
     Dates: start: 2020, end: 2020
  2. EPIDYOLEX [Suspect]
     Active Substance: CANNABIDIOL
     Indication: LENNOX-GASTAUT SYNDROME
     Dosage: 75 MILLIGRAM, BID
     Route: 048
     Dates: start: 202008, end: 2020
  3. FRISIUM [Interacting]
     Active Substance: CLOBAZAM
     Indication: PRODUCT USED FOR UNKNOWN INDICATION
     Dosage: 5 MILLIGRAM, QD (0?0?5 MG)
     Route: 065
     Dates: end: 20210325
  4. BRIVIACT [Concomitant]
     Active Substance: BRIVARACETAM
     Indication: PRODUCT USED FOR UNKNOWN INDICATION
     Dosage: 50 MILLIGRAM, BID (50?0?50 MG)
     Route: 065
     Dates: end: 20210325
  5. BRIVIACT [Concomitant]
     Active Substance: BRIVARACETAM
     Dosage: 25 MILLIGRAM, BID (2 X 25 MG)
     Route: 065
     Dates: start: 20210326, end: 202105
  6. FYCOMPA [Concomitant]
     Active Substance: PERAMPANEL
     Indication: PRODUCT USED FOR UNKNOWN INDICATION
     Dosage: 8 MILLIGRAM, QD (0?0?0?8 MG)
     Route: 065
  7. VIMPAT [Concomitant]
     Active Substance: LACOSAMIDE
     Indication: PRODUCT USED FOR UNKNOWN INDICATION
     Dosage: 200 MILLIGRAM, BID (200?0?200 MG)
     Route: 065
  8. EPIDYOLEX [Interacting]
     Active Substance: CANNABIDIOL
     Dosage: 300 MILLIGRAM, BID
     Route: 048
     Dates: start: 2020, end: 2020
  9. EPIDYOLEX [Interacting]
     Active Substance: CANNABIDIOL
     Dosage: 400 MILLIGRAM, BID
     Route: 048
     Dates: start: 202012
  10. FRISIUM [Interacting]
     Active Substance: CLOBAZAM
     Dosage: 5 MG EVERY SECOND DAY
     Route: 065
     Dates: start: 20210326, end: 20210409
  11. RISPERIDONE. [Concomitant]
     Active Substance: RISPERIDONE
     Indication: PRODUCT USED FOR UNKNOWN INDICATION
     Dosage: 1 MILLIGRAM, QD (2 X 0.5 MG)
     Route: 065

REACTIONS (6)
  - Psychomotor retardation [Recovered/Resolved]
  - Speech disorder [Recovered/Resolved]
  - Drug interaction [Unknown]
  - Product use in unapproved indication [Unknown]
  - Prescribed overdose [Unknown]
  - Somnolence [Recovered/Resolved]

NARRATIVE: CASE EVENT DATE: 202101
